FAERS Safety Report 4597744-8 (Version None)
Quarter: 2005Q1

REPORT INFORMATION
  Report Type: 
  Country: None (occurrence: None)
  Receive Date: 20050303
  Receipt Date: 20050223
  Transmission Date: 20050727
  Serious: Yes (Hospitalization)
  Sender: FDA-Public Use
  Company Number: US-MERCK-0502USA03096

PATIENT
  Age: 66 Year
  Sex: Female

DRUGS (2)
  1. ZOCOR [Suspect]
     Indication: BLOOD CHOLESTEROL INCREASED
     Route: 048
     Dates: end: 20050202
  2. PAXIL [Concomitant]
     Route: 065

REACTIONS (2)
  - CYSTITIS [None]
  - HEPATOCELLULAR DAMAGE [None]
